FAERS Safety Report 6981369-0 (Version None)
Quarter: 2010Q3

REPORT INFORMATION
  Report Type: 
  Country: None (occurrence: None)
  Receive Date: 20100914
  Receipt Date: 20100831
  Transmission Date: 20110219
  Serious: Yes (Hospitalization)
  Sender: FDA-Public Use
  Company Number: DE-MYLANLABS-2010S1016016

PATIENT
  Age: 25 Year
  Sex: Female

DRUGS (2)
  1. METOCLOPRAMIDE [Suspect]
     Indication: CONSTIPATION
     Route: 065
  2. TRAMADOL [Suspect]
     Indication: PAIN
     Route: 065

REACTIONS (1)
  - PORPHYRIA [None]
